FAERS Safety Report 21172892 (Version 1)
Quarter: 2022Q3

REPORT INFORMATION
  Report Type: Spontaneous
  Country: US (occurrence: None)
  Receive Date: 20220804
  Receipt Date: 20220804
  Transmission Date: 20221027
  Serious: Yes (Hospitalization)
  Sender: FDA-Public Use
  Company Number: None

PATIENT
  Sex: Female

DRUGS (1)
  1. OCTREOTIDE [Suspect]
     Active Substance: OCTREOTIDE
     Indication: Gastrointestinal haemorrhage
     Dosage: 100 MCG/ML ? INJECT 1ML UNDER THE SKIN (SUBCUTANEOUS INJECTION) TWICE DAILY
     Route: 058
     Dates: start: 20201130

REACTIONS (1)
  - Hospitalisation [None]
